FAERS Safety Report 7950683-4 (Version None)
Quarter: 2011Q4

REPORT INFORMATION
  Report Type: 
  Country: None (occurrence: None)
  Receive Date: 20111201
  Receipt Date: 20111121
  Transmission Date: 20120403
  Serious: Yes (Life-Threatening, Hospitalization)
  Sender: FDA-Public Use
  Company Number: US-BAYER-2011-062468

PATIENT
  Age: 30 Year
  Sex: Female
  Weight: 100 kg

DRUGS (3)
  1. KEPPRA [Concomitant]
  2. LEVETIRACETAM [Concomitant]
  3. YAZ [Suspect]
     Indication: ORAL CONTRACEPTION
     Dosage: UNK
     Dates: start: 20070501, end: 20070701

REACTIONS (6)
  - CONVULSION [None]
  - ASTHENIA [None]
  - PAIN [None]
  - GENERAL PHYSICAL HEALTH DETERIORATION [None]
  - FATIGUE [None]
  - INTRACRANIAL VENOUS SINUS THROMBOSIS [None]
